FAERS Safety Report 18952300 (Version 1)
Quarter: 2021Q1

REPORT INFORMATION
  Report Type: Other
  Country: FR (occurrence: FR)
  Receive Date: 20210301
  Receipt Date: 20210301
  Transmission Date: 20210420
  Serious: Yes (Hospitalization, Other)
  Sender: FDA-Public Use
  Company Number: FR-ASTELLAS-2021US006951

PATIENT
  Age: 77 Year
  Sex: Male

DRUGS (2)
  1. XTANDI [Suspect]
     Active Substance: ENZALUTAMIDE
     Indication: PROSTATE CANCER METASTATIC
     Route: 048
     Dates: start: 20200228
  2. XTANDI [Suspect]
     Active Substance: ENZALUTAMIDE
     Dosage: UNK UNK, UNKNOWN FREQ. (REDUCED DOSE)
     Route: 048

REACTIONS (6)
  - Dementia [Recovering/Resolving]
  - Cardiac failure [Recovered/Resolved]
  - Asthenia [Not Recovered/Not Resolved]
  - Brain natriuretic peptide increased [Recovered/Resolved]
  - Somnolence [Recovering/Resolving]
  - Renal cyst haemorrhage [Recovered/Resolved]

NARRATIVE: CASE EVENT DATE: 20200618
